FAERS Safety Report 11860919 (Version 1)
Quarter: 2015Q4

REPORT INFORMATION
  Report Type: Spontaneous
  Country: US (occurrence: US)
  Receive Date: 20151222
  Receipt Date: 20151222
  Transmission Date: 20160305
  Serious: Yes (Other)
  Sender: FDA-Public Use
  Company Number: US-PFIZER INC-2015453642

PATIENT
  Age: 64 Year
  Sex: Female

DRUGS (1)
  1. XELJANZ [Suspect]
     Active Substance: TOFACITINIB CITRATE
     Dosage: 5 MG, 2X/DAY
     Route: 048
     Dates: start: 20151124, end: 20151124

REACTIONS (8)
  - Mental impairment [Unknown]
  - Drug hypersensitivity [Unknown]
  - Lacrimation increased [Unknown]
  - Eye pruritus [Unknown]
  - Pruritus [Unknown]
  - Throat irritation [Unknown]
  - Headache [Unknown]
  - Throat tightness [Unknown]
